FAERS Safety Report 6393025-0 (Version None)
Quarter: 2009Q4

REPORT INFORMATION
  Report Type: 
  Country: None (occurrence: None)
  Receive Date: 20091008
  Receipt Date: 20070605
  Transmission Date: 20100525
  Serious: Yes (Hospitalization, Other)
  Sender: FDA-Public Use
  Company Number: US-ASTRAZENECA-2006UW27966

PATIENT
  Age: 33 Year
  Sex: Female
  Weight: 109.8 kg

DRUGS (47)
  1. SEROQUEL [Suspect]
     Indication: INSOMNIA
     Route: 048
     Dates: start: 20000101, end: 20070101
  2. SEROQUEL [Suspect]
     Indication: DEPRESSION
     Route: 048
     Dates: start: 20000101, end: 20070101
  3. SEROQUEL [Suspect]
     Indication: BIPOLAR DISORDER
     Route: 048
     Dates: start: 20000101, end: 20070101
  4. SEROQUEL [Suspect]
     Indication: AGITATION
     Route: 048
     Dates: start: 20000101, end: 20070101
  5. SEROQUEL [Suspect]
     Indication: SLEEP DISORDER
     Route: 048
     Dates: start: 20000101, end: 20070101
  6. SEROQUEL [Suspect]
     Indication: HALLUCINATION, AUDITORY
     Route: 048
     Dates: start: 20000101, end: 20070101
  7. SEROQUEL [Suspect]
     Dosage: 25 MG - 1000 MG
     Route: 048
     Dates: start: 20000421, end: 20040302
  8. SEROQUEL [Suspect]
     Dosage: 25 MG - 1000 MG
     Route: 048
     Dates: start: 20000421, end: 20040302
  9. SEROQUEL [Suspect]
     Dosage: 25 MG - 1000 MG
     Route: 048
     Dates: start: 20000421, end: 20040302
  10. SEROQUEL [Suspect]
     Dosage: 25 MG - 1000 MG
     Route: 048
     Dates: start: 20000421, end: 20040302
  11. SEROQUEL [Suspect]
     Dosage: 25 MG - 1000 MG
     Route: 048
     Dates: start: 20000421, end: 20040302
  12. SEROQUEL [Suspect]
     Dosage: 25 MG - 1000 MG
     Route: 048
     Dates: start: 20000421, end: 20040302
  13. SEROQUEL [Suspect]
     Dosage: 300 MG - 400 MG
     Route: 048
     Dates: start: 20041014
  14. SEROQUEL [Suspect]
     Dosage: 300 MG - 400 MG
     Route: 048
     Dates: start: 20041014
  15. SEROQUEL [Suspect]
     Dosage: 300 MG - 400 MG
     Route: 048
     Dates: start: 20041014
  16. SEROQUEL [Suspect]
     Dosage: 300 MG - 400 MG
     Route: 048
     Dates: start: 20041014
  17. SEROQUEL [Suspect]
     Dosage: 300 MG - 400 MG
     Route: 048
     Dates: start: 20041014
  18. SEROQUEL [Suspect]
     Dosage: 300 MG - 400 MG
     Route: 048
     Dates: start: 20041014
  19. PAXIL [Concomitant]
     Dosage: 40 MG - 80 MG
     Route: 048
     Dates: start: 20000101
  20. ESKALITH CR/ LITHBOID [Concomitant]
     Dosage: 450 MG - 1200 MG
     Dates: start: 20000101
  21. LEXAPRO [Concomitant]
     Indication: AFFECTIVE DISORDER
     Dates: start: 20040219
  22. ABILIFY [Concomitant]
     Dates: start: 20030821
  23. CLONAZEPAM [Concomitant]
     Indication: ANXIETY
     Dosage: 2 MG - 20 MG
     Route: 048
     Dates: start: 20030821
  24. ATIVAN [Concomitant]
     Indication: ANXIETY
     Dosage: 1 MG - 6 MG
     Route: 048
     Dates: start: 20011015
  25. ATIVAN [Concomitant]
     Indication: AGITATION
     Dosage: 1 MG - 6 MG
     Route: 048
     Dates: start: 20011015
  26. ATIVAN [Concomitant]
     Indication: NAUSEA
     Dosage: 1 MG - 6 MG
     Route: 048
     Dates: start: 20011015
  27. LISINOPRIL [Concomitant]
     Indication: HYPERTENSION
     Dosage: 20 MG - 40 MG
     Route: 048
     Dates: start: 20030209
  28. LAMICTAL [Concomitant]
     Indication: DEPRESSION
     Dosage: 25 MG - 300 MG
     Dates: start: 20030619, end: 20040302
  29. LIPITOR [Concomitant]
     Indication: HYPERCHOLESTEROLAEMIA
     Dosage: 10 MG - 80 MG
     Dates: start: 20010626
  30. LANTUS [Concomitant]
     Dosage: 15 UNITS - 250 UNITS
     Route: 058
     Dates: start: 20010626
  31. HUMALOG [Concomitant]
     Dosage: 15 UNITS - 75 UNITS
     Route: 058
     Dates: start: 20010626
  32. ZYPREXA [Concomitant]
     Dosage: 5 MG - 15 MG
     Route: 048
     Dates: start: 20040219
  33. GEMFIBROZIL [Concomitant]
     Dates: start: 20041014
  34. TRICOR [Concomitant]
     Dates: start: 20041014
  35. ZETIA [Concomitant]
     Dates: start: 20041014
  36. ELAVIL [Concomitant]
     Dosage: 100 MG - 150 MG AT NIGHT
     Route: 048
     Dates: start: 20041014
  37. METHADONE HYDROCHLORIDE [Concomitant]
     Dosage: 10 MG - 40 MG
     Dates: start: 20041014
  38. GLYBURIDE [Concomitant]
     Route: 048
     Dates: start: 20000414
  39. REGLAN [Concomitant]
     Indication: NAUSEA
     Route: 048
     Dates: start: 20060101
  40. DEPAKOTE [Concomitant]
     Route: 048
     Dates: start: 20000418
  41. DEPO-PROVERA [Concomitant]
     Dosage: EVERY THREE MONTHS
     Dates: start: 20011219
  42. RISPERDAL [Concomitant]
     Dates: start: 20010101
  43. XANAX [Concomitant]
     Dates: start: 20000101
  44. HYDROCHLOROTHIAZIDE [Concomitant]
     Dates: start: 20011211
  45. ENALAPRIL MALEATE [Concomitant]
     Indication: HYPERTENSION
     Dosage: 5 MG - 40 MG
     Route: 048
     Dates: start: 20010626
  46. REGULAR INSULIN/ HUMULIN [Concomitant]
     Dosage: 20 UNITS - 120 UNITS
     Dates: start: 20010101
  47. HEPARIN [Concomitant]
     Indication: THROMBOSIS
     Dosage: TWICE DAILY
     Dates: start: 20030101

REACTIONS (21)
  - BLADDER SPASM [None]
  - BLOOD ALKALINE PHOSPHATASE INCREASED [None]
  - BLOOD CHOLESTEROL INCREASED [None]
  - BLOOD TRIGLYCERIDES INCREASED [None]
  - BLOOD UREA INCREASED [None]
  - DIABETES MELLITUS [None]
  - DIABETES MELLITUS INADEQUATE CONTROL [None]
  - DIABETIC EYE DISEASE [None]
  - DIABETIC KETOACIDOSIS [None]
  - DIABETIC NEUROPATHY [None]
  - DIABETIC RETINOPATHY [None]
  - HYPERGLYCAEMIA [None]
  - INBORN ERROR OF METABOLISM [None]
  - INSULIN-REQUIRING TYPE 2 DIABETES MELLITUS [None]
  - KETOACIDOSIS [None]
  - MULTIPLE INJURIES [None]
  - NOCTURIA [None]
  - PANCREATITIS [None]
  - POLLAKIURIA [None]
  - SYNCOPE [None]
  - TYPE 2 DIABETES MELLITUS [None]
